FAERS Safety Report 25841708 (Version 1)
Quarter: 2025Q3

REPORT INFORMATION
  Report Type: Spontaneous
  Country: BR (occurrence: BR)
  Receive Date: 20250924
  Receipt Date: 20250924
  Transmission Date: 20251021
  Serious: Yes (Hospitalization)
  Sender: BAYER HEALTHCARE PHARMACEUTICALS INC.
  Company Number: BR-BAYER-2025A124932

PATIENT
  Age: 58 Year
  Sex: Male
  Weight: 77 kg

DRUGS (2)
  1. ULTRAVIST [Suspect]
     Active Substance: IOPROMIDE
     Indication: Computerised tomogram heart
     Route: 042
     Dates: start: 20250808, end: 20250808
  2. ULTRAVIST [Suspect]
     Active Substance: IOPROMIDE
     Indication: Myocardial ischaemia

REACTIONS (6)
  - Nasal congestion [None]
  - Cough [None]
  - Sneezing [None]
  - Erythema [None]
  - Pulmonary congestion [None]
  - Blood pressure increased [Recovering/Resolving]

NARRATIVE: CASE EVENT DATE: 20250808
